FAERS Safety Report 6437127-9 (Version None)
Quarter: 2009Q4

REPORT INFORMATION
  Report Type: 
  Country: None (occurrence: None)
  Receive Date: 20091112
  Receipt Date: 20091102
  Transmission Date: 20100525
  Serious: Yes (Hospitalization)
  Sender: FDA-Public Use
  Company Number: CA-JNJFOC-20080402539

PATIENT
  Age: 45 Year
  Sex: Female
  Weight: 58.5 kg

DRUGS (3)
  1. INFLIXIMAB [Suspect]
     Indication: HEPATITIS C
     Route: 042
  2. PEG INTERFERON [Suspect]
     Indication: HEPATITIS C
     Route: 058
  3. RIBAVIRIN [Suspect]
     Indication: HEPATITIS C
     Route: 048

REACTIONS (2)
  - AGITATED DEPRESSION [None]
  - CONFUSIONAL STATE [None]
